FAERS Safety Report 16451170 (Version 1)
Quarter: 2019Q2

REPORT INFORMATION
  Report Type: Spontaneous
  Country: US (occurrence: US)
  Receive Date: 20190509
  Receipt Date: 20190509
  Transmission Date: 20190711
  Serious: Yes (Hospitalization)
  Sender: FDA-Public Use
  Company Number: None

PATIENT
  Age: 47 Year
  Sex: Female

DRUGS (1)
  1. HUMIRA [Suspect]
     Active Substance: ADALIMUMAB
     Indication: RHEUMATOID ARTHRITIS
     Route: 058
     Dates: start: 20190409

REACTIONS (6)
  - Migraine [None]
  - Condition aggravated [None]
  - Hypoaesthesia [None]
  - Disease complication [None]
  - Pain [None]
  - Loss of personal independence in daily activities [None]

NARRATIVE: CASE EVENT DATE: 2019
